FAERS Safety Report 24313879 (Version 1)
Quarter: 2024Q3

REPORT INFORMATION
  Report Type: Spontaneous
  Country: US (occurrence: US)
  Receive Date: 20240912
  Receipt Date: 20240912
  Transmission Date: 20241017
  Serious: No
  Sender: MERCK
  Company Number: US-009507513-2409USA001953

PATIENT
  Sex: Female
  Weight: 52.5 kg

DRUGS (1)
  1. WINREVAIR [Suspect]
     Active Substance: SOTATERCEPT-CSRK
     Indication: Pulmonary hypertension
     Dosage: 0.7 MILLIGRAM, Q3W
     Route: 058
     Dates: start: 20240619

REACTIONS (1)
  - White blood cell count abnormal [Recovered/Resolved]

NARRATIVE: CASE EVENT DATE: 20240101
